FAERS Safety Report 5397649-9 (Version None)
Quarter: 2007Q3

REPORT INFORMATION
  Report Type: 
  Country: None (occurrence: None)
  Receive Date: 20070723
  Receipt Date: 20070709
  Transmission Date: 20080115
  Serious: Yes (Hospitalization)
  Sender: FDA-Public Use
  Company Number: 2007JP003221

PATIENT
  Age: 38 Year
  Sex: Female

DRUGS (2)
  1. TACROLIMUS [Suspect]
     Dosage: 3 MG, /D, ORAL
     Route: 048
     Dates: start: 20070528
  2. PREDNISOLONE [Concomitant]

REACTIONS (1)
  - MENINGITIS [None]
